FAERS Safety Report 6657928-1 (Version None)
Quarter: 2010Q1

REPORT INFORMATION
  Report Type: 
  Country: None (occurrence: None)
  Receive Date: 20100330
  Receipt Date: 20100324
  Transmission Date: 20100710
  Serious: Yes (Other)
  Sender: FDA-Public Use
  Company Number: CA-ROCHE-693463

PATIENT
  Sex: Female
  Weight: 54 kg

DRUGS (4)
  1. BEVACIZUMAB [Suspect]
     Indication: GLIOBLASTOMA
     Route: 042
     Dates: start: 20100309
  2. KEPPRA [Concomitant]
  3. DECADRON [Concomitant]
  4. FRISIUM [Concomitant]

REACTIONS (1)
  - BRAIN OEDEMA [None]
